FAERS Safety Report 16135788 (Version 1)
Quarter: 2019Q1

REPORT INFORMATION
  Report Type: Spontaneous
  Country: FR (occurrence: FR)
  Receive Date: 20190329
  Receipt Date: 20190329
  Transmission Date: 20190418
  Serious: Yes (Hospitalization)
  Sender: FDA-Public Use
  Company Number: FR-TEVA-2019-FR-1031044

PATIENT
  Age: 31 Year
  Sex: Male

DRUGS (7)
  1. BLEOMYCINE [Suspect]
     Active Substance: BLEOMYCIN SULFATE
     Indication: TESTIS CANCER
     Dosage: 30 MILLIGRAM DAILY;
     Route: 042
     Dates: start: 20070206, end: 20070206
  2. ZOPHREN [Concomitant]
     Active Substance: ONDANSETRON
     Dosage: 1 IU (INTERNATIONAL UNIT) DAILY;
  3. SOLU-MEDROL [Concomitant]
     Active Substance: METHYLPREDNISOLONE SODIUM SUCCINATE
     Dosage: 80 MILLIGRAM DAILY;
  4. POLARAMINE [Concomitant]
     Active Substance: DEXCHLORPHENIRAMINE MALEATE
  5. CISPLATYL [Suspect]
     Active Substance: CISPLATIN
     Indication: TESTIS CANCER
     Dosage: 42 MILLIGRAM DAILY;
     Route: 042
     Dates: start: 20070129, end: 20070202
  6. VEPESIDE [Suspect]
     Active Substance: ETOPOSIDE
     Indication: TESTIS CANCER
     Route: 042
     Dates: start: 20070129, end: 20070202
  7. NEORECORMAN [Concomitant]

REACTIONS (3)
  - Vomiting [Unknown]
  - Chest pain [Recovered/Resolved with Sequelae]
  - Electrocardiogram abnormal [Recovered/Resolved with Sequelae]

NARRATIVE: CASE EVENT DATE: 20070206
